FAERS Safety Report 8560818-0 (Version None)
Quarter: 2012Q3

REPORT INFORMATION
  Report Type: 
  Country: None (occurrence: None)
  Receive Date: 20120727
  Receipt Date: 20120727
  Transmission Date: 20120928
  Serious: Yes (Hospitalization)
  Sender: FDA-Public Use
  Company Number: None

PATIENT
  Age: 90 Year
  Sex: Female
  Weight: 65.9 kg

DRUGS (12)
  1. VESICARE [Concomitant]
  2. METOPROLOL TARTRATE [Concomitant]
  3. TYLENOL [Concomitant]
  4. NORCO [Concomitant]
  5. CALCIUM CARBONATE [Concomitant]
  6. FOLIC ACID [Concomitant]
  7. VITAMIN D [Concomitant]
  8. MIRALAX [Concomitant]
  9. TRAMADOL HCL [Concomitant]
  10. COUMADIN [Suspect]
     Indication: HUMERUS FRACTURE
     Dosage: 5MG DAILY PO RECENT
     Route: 048
  11. VITAMIN B-12 [Concomitant]
  12. SENNA-MINT WAF [Concomitant]

REACTIONS (6)
  - PAIN IN EXTREMITY [None]
  - SOFT TISSUE HAEMORRHAGE [None]
  - HAEMORRHAGIC ANAEMIA [None]
  - CONFUSIONAL STATE [None]
  - DEEP VEIN THROMBOSIS [None]
  - LETHARGY [None]
